FAERS Safety Report 14741293 (Version 1)
Quarter: 2018Q2

REPORT INFORMATION
  Report Type: Spontaneous
  Country: FR (occurrence: FR)
  Receive Date: 20180410
  Receipt Date: 20180410
  Transmission Date: 20180711
  Serious: Yes (Hospitalization)
  Sender: FDA-Public Use
  Company Number: FR-TEVA-2018-FR-879873

PATIENT
  Age: 18 Year
  Sex: Male

DRUGS (8)
  1. MODAMIDE 5 MG, COMPRIM? [Concomitant]
     Dosage: 2 DOSAGE FORMS DAILY;
     Route: 048
  2. MAGN?SIUM (LACTATE DE) DIHYDRAT? [Concomitant]
     Route: 048
  3. MINIRIN [Concomitant]
     Active Substance: DESMOPRESSIN ACETATE
     Route: 048
  4. AMOXICILLIN. [Suspect]
     Active Substance: AMOXICILLIN
     Indication: LUNG DISORDER
     Dosage: 3 GRAM DAILY;
     Route: 048
  5. TAURINE [Concomitant]
     Active Substance: TAURINE
     Route: 048
  6. VITAMIN B6 [Concomitant]
     Active Substance: PYRIDOXINE HYDROCHLORIDE
     Route: 048
  7. MOPRAL 10 MG, COMPRIM? GASTRO-R?SISTANT [Concomitant]
     Route: 048
  8. DIFFU K [Concomitant]
     Active Substance: POTASSIUM CHLORIDE
     Dosage: 5400 MILLIGRAM DAILY;
     Route: 048

REACTIONS (1)
  - Pancreatitis acute [Recovered/Resolved]
